FAERS Safety Report 9440824 (Version 1)
Quarter: 2013Q3

REPORT INFORMATION
  Report Type: Spontaneous
  Country: BG (occurrence: BG)
  Receive Date: 20130805
  Receipt Date: 20130805
  Transmission Date: 20140515
  Serious: Yes (Life-Threatening, Hospitalization)
  Sender: FDA-Public Use
  Company Number: BG-ASTRAZENECA-2013SE60175

PATIENT
  Age: 65 Year
  Sex: Male

DRUGS (8)
  1. BRILIQUE [Suspect]
     Route: 048
     Dates: start: 2012
  2. ASPIRIN PROTECT [Concomitant]
  3. CRESTOR [Concomitant]
  4. CONCOR [Concomitant]
  5. PRESTARIUM [Concomitant]
  6. KARDIKET [Concomitant]
  7. CAVINTON FORTE [Concomitant]
  8. NERGOLIN [Concomitant]

REACTIONS (2)
  - Ischaemic stroke [Unknown]
  - Coronary artery stenosis [Unknown]
